FAERS Safety Report 13242735 (Version 1)
Quarter: 2017Q1

REPORT INFORMATION
  Report Type: Spontaneous
  Country: US (occurrence: US)
  Receive Date: 20170217
  Receipt Date: 20170217
  Transmission Date: 20170428
  Serious: No
  Sender: FDA-Public Use
  Company Number: US-NOVOPROD-525118

PATIENT
  Age: 69 Year
  Sex: Male

DRUGS (2)
  1. VICTOZA [Suspect]
     Active Substance: LIRAGLUTIDE
     Indication: GLUCOSE TOLERANCE IMPAIRED
     Dosage: 1.2 MG, QD
     Route: 058
     Dates: start: 2016, end: 20161224
  2. INVOKANA [Concomitant]
     Active Substance: CANAGLIFLOZIN
     Indication: GLUCOSE TOLERANCE IMPAIRED
     Route: 048

REACTIONS (6)
  - Skin exfoliation [Unknown]
  - Skin disorder [Recovered/Resolved]
  - Localised infection [Recovered/Resolved]
  - Product use issue [Unknown]
  - Erythema [Unknown]
  - Rash [Recovering/Resolving]

NARRATIVE: CASE EVENT DATE: 2016
